FAERS Safety Report 5533070-8 (Version None)
Quarter: 2007Q4

REPORT INFORMATION
  Report Type: 
  Country: None (occurrence: None)
  Receive Date: 20071120
  Receipt Date: 20071004
  Transmission Date: 20080405
  Serious: No
  Sender: FDA-Public Use
  Company Number: WAES 0710USA01159

PATIENT
  Age: 59 Year
  Sex: Female

DRUGS (3)
  1. JANUVIA [Suspect]
     Indication: TYPE 2 DIABETES MELLITUS
     Dosage: 100  MG/DAILY/PO ; DAILY/PO
     Route: 048
     Dates: start: 20070823
  2. JANUVIA [Suspect]
     Indication: TYPE 2 DIABETES MELLITUS
     Dosage: 100  MG/DAILY/PO ; DAILY/PO
     Route: 048
     Dates: start: 20071004
  3. GLUCERNA [Concomitant]

REACTIONS (5)
  - DRUG INEFFECTIVE [None]
  - HEART RATE INCREASED [None]
  - OVERDOSE [None]
  - RESPIRATORY DISORDER [None]
  - WRONG TECHNIQUE IN DRUG USAGE PROCESS [None]
